FAERS Safety Report 4741936-1 (Version None)
Quarter: 2005Q3

REPORT INFORMATION
  Report Type: 
  Country: None (occurrence: None)
  Receive Date: 20050801
  Receipt Date: 20050614
  Transmission Date: 20060218
  Serious: No
  Sender: FDA-Public Use
  Company Number: 2005PV000042

PATIENT
  Age: 65 Year
  Sex: Female
  Weight: 88.905 kg

DRUGS (11)
  1. BYETTA [Suspect]
     Indication: DIABETES MELLITUS NON-INSULIN-DEPENDENT
     Dosage: 5 UG;BID;SC
     Route: 058
     Dates: start: 20050613
  2. AVANDIA [Concomitant]
  3. GLUCOPHAGE ^BRISTOLMYER SQUIBB^ [Concomitant]
  4. GLUCOPHAGE [Concomitant]
  5. GLYBURIDE [Concomitant]
  6. LIPITOR [Concomitant]
  7. CARDIZEM [Concomitant]
  8. HYZAAR [Concomitant]
  9. CATAPRESSAN TTS [Concomitant]
  10. FLONASE [Concomitant]
  11. SYNTHROID [Concomitant]

REACTIONS (1)
  - BLOOD GLUCOSE INCREASED [None]
